FAERS Safety Report 8581765-4 (Version None)
Quarter: 2012Q2

REPORT INFORMATION
  Report Type: 
  Country: None (occurrence: None)
  Receive Date: 20120423
  Receipt Date: 20100722
  Transmission Date: 20120825
  Serious: Yes (Other)
  Sender: FDA-Public Use
  Company Number: PHHY2010US48432

PATIENT
  Age: 57 Year
  Sex: Male
  Weight: 87.1 kg

DRUGS (1)
  1. EXJADE [Suspect]
     Indication: LYMPHOMA
     Dosage: 1000 MG DAILY, ORAL
     Route: 048
     Dates: start: 20100217

REACTIONS (3)
  - DYSPNOEA [None]
  - PLATELET COUNT DECREASED [None]
  - BLOOD TESTOSTERONE DECREASED [None]
